FAERS Safety Report 9454905 (Version 1)
Quarter: 2013Q3

REPORT INFORMATION
  Report Type: Spontaneous
  Country: US (occurrence: US)
  Receive Date: 20130813
  Receipt Date: 20130813
  Transmission Date: 20140515
  Serious: Yes (Other)
  Sender: FDA-Public Use
  Company Number: US-JNJFOC-20130801809

PATIENT
  Age: 39 Year
  Sex: Female

DRUGS (9)
  1. XARELTO [Suspect]
     Indication: DEEP VEIN THROMBOSIS
     Route: 048
  2. ZYRTEC [Suspect]
     Route: 065
  3. ZYRTEC [Suspect]
     Indication: PRODUCT USED FOR UNKNOWN INDICATION
     Route: 065
  4. LEVOTHYROXINE [Concomitant]
     Route: 065
  5. METFORMIN [Concomitant]
     Route: 065
  6. REQUIP [Concomitant]
     Route: 065
  7. IMITREX [Concomitant]
     Route: 065
  8. PROTONIX [Concomitant]
     Route: 065
  9. MELOXICAM [Concomitant]
     Route: 065

REACTIONS (1)
  - Gastrointestinal haemorrhage [Unknown]
